FAERS Safety Report 5787614-1 (Version None)
Quarter: 2008Q2

REPORT INFORMATION
  Report Type: 
  Country: None (occurrence: None)
  Receive Date: 20080625
  Receipt Date: 20071019
  Transmission Date: 20081010
  Serious: Yes (Other)
  Sender: FDA-Public Use
  Company Number: US-ASTRAZENECA-2007UW24405

PATIENT
  Age: 73 Year
  Sex: Male
  Weight: 79.4 kg

DRUGS (15)
  1. PULMICORT RESPULES [Suspect]
     Indication: CHRONIC OBSTRUCTIVE PULMONARY DISEASE
     Route: 055
     Dates: start: 20060101, end: 20070101
  2. PULMICORT RESPULES [Suspect]
     Route: 055
     Dates: start: 20070101
  3. TRAVATAN [Concomitant]
  4. COZAAR [Concomitant]
  5. HYDROCHLOROTHIAZIDE [Concomitant]
  6. FELODIPINE [Concomitant]
  7. ASCORBIC ACID [Concomitant]
  8. VITAMIN E B COMPLEX [Concomitant]
  9. MULTI-VITAMIN [Concomitant]
  10. GLUCOSAMINE [Concomitant]
  11. COENZYME Q10 [Concomitant]
  12. FORADIL [Concomitant]
  13. OSTEO-BYFLEX [Concomitant]
  14. FISH OIL [Concomitant]
  15. LECITHIN [Concomitant]

REACTIONS (1)
  - GLAUCOMA [None]
